FAERS Safety Report 11791261 (Version 1)
Quarter: 2015Q4

REPORT INFORMATION
  Report Type: Spontaneous
  Country: US (occurrence: US)
  Receive Date: 20151201
  Receipt Date: 20151201
  Transmission Date: 20160305
  Serious: Yes (Hospitalization, Other)
  Sender: FDA-Public Use
  Company Number: US-SUVEN LIFE SCIENCES LTD.-2015SUV00007

PATIENT
  Age: 68 Year
  Sex: Female
  Weight: 62.59 kg

DRUGS (4)
  1. GABAPENTIN. [Concomitant]
     Active Substance: GABAPENTIN
     Dosage: UNK
     Dates: start: 1995
  2. KLONOPIN [Concomitant]
     Active Substance: CLONAZEPAM
     Dosage: UNK
  3. MALATHION. [Suspect]
     Active Substance: MALATHION
     Indication: EXPOSURE VIA INHALATION
     Dosage: UNK, ONCE
     Dates: start: 20151117, end: 20151117
  4. CELEXA [Concomitant]
     Active Substance: CITALOPRAM HYDROBROMIDE
     Dosage: 10 MG, UNK

REACTIONS (7)
  - Accidental exposure to product [None]
  - Pericarditis [Unknown]
  - Chest pain [Recovering/Resolving]
  - Exposure to toxic agent [Recovered/Resolved]
  - Pleurisy [Unknown]
  - Hypoaesthesia [Recovered/Resolved]
  - Exposure via inhalation [Recovered/Resolved]

NARRATIVE: CASE EVENT DATE: 20151117
